FAERS Safety Report 12632337 (Version 2)
Quarter: 2016Q3

REPORT INFORMATION
  Report Type: Spontaneous
  Country: US (occurrence: US)
  Receive Date: 20160808
  Receipt Date: 20160808
  Transmission Date: 20161109
  Serious: No
  Sender: FDA-Public Use
  Company Number: US-BEH-2016062556

PATIENT
  Sex: Female
  Weight: 82 kg

DRUGS (25)
  1. ZITHROMAX [Concomitant]
     Active Substance: AZITHROMYCIN DIHYDRATE
  2. FLONASE [Concomitant]
     Active Substance: FLUTICASONE PROPIONATE
  3. NEXIUM [Concomitant]
     Active Substance: ESOMEPRAZOLE MAGNESIUM
  4. CEFTIN [Concomitant]
     Active Substance: CEFUROXIME AXETIL
  5. ASTEPRO [Concomitant]
     Active Substance: AZELASTINE HYDROCHLORIDE
  6. ASTELIN [Concomitant]
     Active Substance: AZELASTINE HYDROCHLORIDE
  7. IBUPROFEN. [Concomitant]
     Active Substance: IBUPROFEN
  8. XOPENEX [Concomitant]
     Active Substance: LEVALBUTEROL HYDROCHLORIDE
  9. RANITIDINE. [Concomitant]
     Active Substance: RANITIDINE
  10. HIZENTRA [Suspect]
     Active Substance: HUMAN IMMUNOGLOBULIN G
     Indication: ASTHMA
     Route: 057
     Dates: start: 20110317
  11. ACETAMINOPHEN. [Concomitant]
     Active Substance: ACETAMINOPHEN
  12. MAXALT [Concomitant]
     Active Substance: RIZATRIPTAN BENZOATE
  13. ZYRTEC [Concomitant]
     Active Substance: CETIRIZINE HYDROCHLORIDE
  14. VITAMIN B [Concomitant]
     Active Substance: VITAMIN B
  15. IRON [Concomitant]
     Active Substance: IRON
  16. FOSAMAX [Concomitant]
     Active Substance: ALENDRONATE SODIUM
  17. CALCIUM [Concomitant]
     Active Substance: CALCIUM
  18. MUCINEX [Concomitant]
     Active Substance: GUAIFENESIN
  19. HIZENTRA [Suspect]
     Active Substance: HUMAN IMMUNOGLOBULIN G
     Indication: ASTHMA
     Route: 057
     Dates: start: 20110317
  20. GABAPENTIN. [Concomitant]
     Active Substance: GABAPENTIN
  21. NEURONTIN [Concomitant]
     Active Substance: GABAPENTIN
  22. TRAMADOL. [Concomitant]
     Active Substance: TRAMADOL
  23. DIPHENHYDRAMINE. [Concomitant]
     Active Substance: DIPHENHYDRAMINE
  24. LMX [Concomitant]
     Active Substance: LIDOCAINE
  25. REFRESH [Concomitant]
     Active Substance: UNSPECIFIED INGREDIENT

REACTIONS (1)
  - Sinusitis [Unknown]
